FAERS Safety Report 8348823-0 (Version None)
Quarter: 2012Q2

REPORT INFORMATION
  Report Type: 
  Country: None (occurrence: None)
  Receive Date: 20120508
  Receipt Date: 20120425
  Transmission Date: 20120825
  Serious: Yes (Life-Threatening, Hospitalization)
  Sender: FDA-Public Use
  Company Number: 001123897A

PATIENT
  Age: 31 Year
  Sex: Female

DRUGS (1)
  1. PROACTIV90 DAY KIT [Suspect]
     Indication: ACNE
     Dosage: ONCE DAILY ORAL
     Route: 048
     Dates: start: 20120307

REACTIONS (6)
  - EYE SWELLING [None]
  - HYPERSENSITIVITY [None]
  - DYSPNOEA [None]
  - SWELLING FACE [None]
  - PRURITUS [None]
  - PHARYNGEAL OEDEMA [None]
